FAERS Safety Report 10682063 (Version 2)
Quarter: 2015Q1

REPORT INFORMATION
  Report Type: Spontaneous
  Country: US (occurrence: US)
  Receive Date: 20141230
  Receipt Date: 20150120
  Transmission Date: 20150720
  Serious: No
  Sender: FDA-Public Use
  Company Number: US-PFIZER INC-2014350698

PATIENT
  Age: 48 Year
  Sex: Male

DRUGS (2)
  1. LYRICA [Suspect]
     Active Substance: PREGABALIN
     Indication: NEURALGIA
     Dosage: (1 100MG CAPSULE IN THE MORNING, 1 100MG CAPSULE IN THE AFTERNOON, 1 300MG CAPSULE AT NIGHT), 3X/DAY
     Dates: start: 2012
  2. MOTRIN [Concomitant]
     Active Substance: IBUPROFEN
     Dosage: UNK, AS NEEDED

REACTIONS (2)
  - Impaired healing [Unknown]
  - Pain [Not Recovered/Not Resolved]
